FAERS Safety Report 5307464-X (Version None)
Quarter: 2007Q2

REPORT INFORMATION
  Report Type: 
  Country: None (occurrence: None)
  Receive Date: 20070425
  Receipt Date: 20070413
  Transmission Date: 20071010
  Serious: Yes (Death)
  Sender: FDA-Public Use
  Company Number: JP-ROCHE-490664

PATIENT
  Age: 6 Year
  Sex: Male
  Weight: 18 kg

DRUGS (6)
  1. TAMIFLU [Suspect]
     Dosage: FORM: DRY SYRUP.
     Route: 048
     Dates: start: 20070316, end: 20070316
  2. TAMIFLU [Suspect]
     Dosage: FORM: DRY SYRUP.
     Route: 048
     Dates: start: 20070317, end: 20070317
  3. DIFLUCAN [Concomitant]
     Route: 048
     Dates: start: 20061113, end: 20070317
  4. CYTARABINE [Concomitant]
     Dosage: DRUG + ROUTE REPORTED AS: UNKNOWN DRUG (CYTARABINE), INJECTABLE (NOT OTHERWISE SPECIFIED)
     Route: 050
     Dates: start: 20070306
  5. NOVANTRONE [Concomitant]
     Dosage: ROUTE: INTRAVENOUS (NOT OTHERWISE SPECIFIED)
     Route: 042
     Dates: start: 20070306
  6. ANTINEOPLASTIC AGENT NOS [Concomitant]
     Dates: start: 20061011, end: 20070310

REACTIONS (2)
  - ENCEPHALITIS [None]
  - SEPSIS [None]
